FAERS Safety Report 15588676 (Version 3)
Quarter: 2019Q1

REPORT INFORMATION
  Report Type: Report from Study
  Country: US (occurrence: US)
  Receive Date: 20181106
  Receipt Date: 20190226
  Transmission Date: 20190417
  Serious: Yes (Death, Other)
  Sender: FDA-Public Use
  Company Number: PHEH2018US046850

PATIENT
  Age: 47 Year
  Sex: Male

DRUGS (1)
  1. GILENYA [Suspect]
     Active Substance: FINGOLIMOD HYDROCHLORIDE
     Indication: MULTIPLE SCLEROSIS
     Dosage: UNK UNK, QD
     Route: 048
     Dates: start: 20110805, end: 20180730

REACTIONS (4)
  - Multiple sclerosis [Unknown]
  - Drug ineffective [Unknown]
  - Status epilepticus [Fatal]
  - Epilepsy [Fatal]

NARRATIVE: CASE EVENT DATE: 20180827
